FAERS Safety Report 14280989 (Version 1)
Quarter: 2017Q4

REPORT INFORMATION
  Report Type: Spontaneous
  Country: US (occurrence: US)
  Receive Date: 20171213
  Receipt Date: 20171213
  Transmission Date: 20180321
  Serious: No
  Sender: FDA-Public Use
  Company Number: US-GLAXOSMITHKLINE-US2017191202

PATIENT
  Sex: Male

DRUGS (4)
  1. BUPROPION SR PROLONGED-RELEASE TABLET [Suspect]
     Active Substance: BUPROPION
     Dosage: 100 MG, BID
     Route: 048
     Dates: start: 2017, end: 2017
  2. BUPROPION SR PROLONGED-RELEASE TABLET [Suspect]
     Active Substance: BUPROPION
     Dosage: 150 MG, BID
     Route: 048
     Dates: start: 2017, end: 2017
  3. BUPROPION SR PROLONGED-RELEASE TABLET [Suspect]
     Active Substance: BUPROPION
     Dosage: 100 MG, QD
     Route: 048
     Dates: start: 2017
  4. BUPROPION SR PROLONGED-RELEASE TABLET [Suspect]
     Active Substance: BUPROPION
     Indication: DEPRESSION
     Dosage: 150 MG, QD
     Route: 048
     Dates: start: 20171127, end: 2017

REACTIONS (3)
  - Tinnitus [Recovered/Resolved]
  - Insomnia [Recovered/Resolved]
  - Underdose [Not Recovered/Not Resolved]

NARRATIVE: CASE EVENT DATE: 2017
